FAERS Safety Report 9050450 (Version 2)
Quarter: 2013Q1

REPORT INFORMATION
  Report Type: Spontaneous
  Country: IT (occurrence: IT)
  Receive Date: 20130205
  Receipt Date: 20130315
  Transmission Date: 20140127
  Serious: Yes (Other)
  Sender: FDA-Public Use
  Company Number: IT-CELGENEUS-083-21880-13014451

PATIENT
  Age: 61 None
  Sex: Female

DRUGS (5)
  1. REVLIMID [Suspect]
     Indication: PLASMA CELL MYELOMA
     Route: 048
     Dates: start: 20111128, end: 20120405
  2. CYCLOPHOSPHAMIDE [Suspect]
     Indication: PLASMA CELL MYELOMA
     Dosage: 1UNIT
     Route: 065
     Dates: start: 20110928, end: 20120405
  3. DEXAMETHASONE [Suspect]
     Indication: PLASMA CELL MYELOMA
     Dosage: 1UNIT
     Route: 048
     Dates: start: 20110928, end: 20120405
  4. MELPHALAN [Suspect]
     Indication: PLASMA CELL MYELOMA
     Route: 048
     Dates: start: 20081201, end: 20090401
  5. VELCADE [Suspect]
     Indication: PLASMA CELL MYELOMA
     Route: 048
     Dates: start: 20080501, end: 20090401

REACTIONS (1)
  - Myelodysplastic syndrome [Recovering/Resolving]
